FAERS Safety Report 5645999-0 (Version None)
Quarter: 2008Q1

REPORT INFORMATION
  Report Type: 
  Country: None (occurrence: None)
  Receive Date: 20080131
  Receipt Date: 20071210
  Transmission Date: 20080703
  Serious: Yes (Hospitalization)
  Sender: FDA-Public Use
  Company Number: 163-21880-07120529

PATIENT
  Age: 39 Year
  Sex: Female

DRUGS (12)
  1. REVLIMID [Suspect]
     Indication: MULTIPLE MYELOMA
     Dosage: 25 MG, QD X21 DAYS Q28D, ORAL ; 15 MG, DAILY, ORAL
     Route: 048
     Dates: start: 20071017, end: 20071101
  2. REVLIMID [Suspect]
     Indication: MULTIPLE MYELOMA
     Dosage: 25 MG, QD X21 DAYS Q28D, ORAL ; 15 MG, DAILY, ORAL
     Route: 048
     Dates: start: 20071121
  3. DEXAMETHASONE TAB [Concomitant]
  4. LISINOPRIL [Concomitant]
  5. HYDROCHLOROTHIAZIDE [Concomitant]
  6. METHADONE HCL [Concomitant]
  7. PERCOCET [Concomitant]
  8. RESTORIL [Concomitant]
  9. ZOFRAN [Concomitant]
  10. ATIVAN [Concomitant]
  11. MORPHINE [Concomitant]
  12. PHENERGAN HCL [Concomitant]

REACTIONS (4)
  - FATIGUE [None]
  - MALAISE [None]
  - NAUSEA [None]
  - PYREXIA [None]
